FAERS Safety Report 12095527 (Version 8)
Quarter: 2018Q3

REPORT INFORMATION
  Report Type: Report from Study
  Country: US (occurrence: US)
  Receive Date: 20160219
  Receipt Date: 20180814
  Transmission Date: 20181010
  Serious: Yes (Hospitalization)
  Sender: FDA-Public Use
  Company Number: US-ACTELION-A-US2016-131510

PATIENT
  Age: 46 Year
  Sex: Female
  Weight: 96.6 kg

DRUGS (4)
  1. OXYGEN. [Concomitant]
     Active Substance: OXYGEN
  2. REVATIO [Concomitant]
     Active Substance: SILDENAFIL CITRATE
  3. REMODULIN [Concomitant]
     Active Substance: TREPROSTINIL
  4. OPSUMIT [Suspect]
     Active Substance: MACITENTAN
     Indication: PULMONARY ARTERIAL HYPERTENSION
     Dosage: 10 MG, QD
     Route: 048
     Dates: start: 20150721

REACTIONS (17)
  - Infection [Unknown]
  - Injection site warmth [Unknown]
  - Injection site infection [Unknown]
  - Injection site pruritus [Unknown]
  - Pneumonia [Unknown]
  - Hypoxia [Unknown]
  - Pulmonary arterial hypertension [Unknown]
  - Injection site swelling [Unknown]
  - Nausea [Unknown]
  - Bedridden [Unknown]
  - Dyspnoea [Unknown]
  - Injection site discomfort [Unknown]
  - Injection site pain [Unknown]
  - Peripheral swelling [Unknown]
  - Oxygen saturation decreased [Unknown]
  - Injection site erythema [Unknown]
  - Influenza [Unknown]
